FAERS Safety Report 18047928 (Version 2)
Quarter: 2020Q3

REPORT INFORMATION
  Report Type: Report from Study
  Country: None (occurrence: US)
  Receive Date: 20200721
  Receipt Date: 20200823
  Transmission Date: 20201103
  Serious: Yes (Other)
  Sender: FDA-Public Use
  Company Number: US-ABBVIE-20K-163-3485832-00

PATIENT
  Sex: Male

DRUGS (1)
  1. VENCLEXTA [Suspect]
     Active Substance: VENETOCLAX
     Indication: CHRONIC LYMPHOCYTIC LEUKAEMIA
     Dosage: 4 TABLETS BY MOUTH EVERY DAY WITH BREAKFAST
     Route: 048

REACTIONS (3)
  - Anal fungal infection [Unknown]
  - Abdominal pain upper [Unknown]
  - Fungal infection [Unknown]

NARRATIVE: CASE EVENT DATE: 2020
